FAERS Safety Report 10445413 (Version 2)
Quarter: 2014Q3

REPORT INFORMATION
  Report Type: Spontaneous
  Country: SE (occurrence: SE)
  Receive Date: 20140910
  Receipt Date: 20140922
  Transmission Date: 20150326
  Serious: Yes (Hospitalization)
  Sender: FDA-Public Use
  Company Number: SE-GLAXOSMITHKLINE-B1031690A

PATIENT
  Sex: Female

DRUGS (4)
  1. CHEMOTHERAPY [Concomitant]
     Active Substance: UNSPECIFIED INGREDIENT
  2. ALVEDON [Concomitant]
     Active Substance: ACETAMINOPHEN
  3. OXYCONTIN [Concomitant]
     Active Substance: OXYCODONE HYDROCHLORIDE
  4. VOTRIENT [Suspect]
     Active Substance: PAZOPANIB HYDROCHLORIDE
     Indication: OSTEOSARCOMA METASTATIC
     Dosage: 800MG PER DAY
     Route: 065
     Dates: start: 20140626, end: 20140904

REACTIONS (4)
  - Chest pain [Recovered/Resolved]
  - Neoplasm [Unknown]
  - Pneumothorax [Recovered/Resolved]
  - Disease progression [Unknown]

NARRATIVE: CASE EVENT DATE: 20140904
